FAERS Safety Report 5349505-X (Version None)
Quarter: 2007Q2

REPORT INFORMATION
  Report Type: 
  Country: None (occurrence: None)
  Receive Date: 20070607
  Receipt Date: 20070529
  Transmission Date: 20071010
  Serious: Yes (Hospitalization)
  Sender: FDA-Public Use
  Company Number: HQWYE200915MAY07

PATIENT
  Sex: Male
  Weight: 87 kg

DRUGS (2)
  1. RAPAMUNE [Suspect]
     Indication: PROPHYLAXIS AGAINST TRANSPLANT REJECTION
     Route: 048
     Dates: start: 20070401, end: 20070501
  2. RAPAMUNE [Suspect]
     Route: 048
     Dates: start: 20070501, end: 20070523

REACTIONS (1)
  - LIVER TRANSPLANT REJECTION [None]
